FAERS Safety Report 6354793-7 (Version None)
Quarter: 2009Q3

REPORT INFORMATION
  Report Type: 
  Country: None (occurrence: None)
  Receive Date: 20090909
  Receipt Date: 20090827
  Transmission Date: 20100115
  Serious: Yes (Other)
  Sender: FDA-Public Use
  Company Number: 2009SP022338

PATIENT
  Age: 45 Year
  Sex: Male

DRUGS (6)
  1. DEXAMETHASONE [Suspect]
     Indication: BILE DUCT CANCER
     Dosage: 2 MG, PO
     Route: 048
     Dates: start: 20090816, end: 20090821
  2. XELODA [Suspect]
     Indication: BILE DUCT CANCER
     Dosage: 2500 MG, BID, PO
     Route: 048
     Dates: end: 20090816
  3. LORATADINE [Concomitant]
  4. PANTOPRAZOL [Concomitant]
  5. LOPERAMIDE [Concomitant]
  6. DURAGESIC-100 [Concomitant]

REACTIONS (1)
  - DERMATITIS ACNEIFORM [None]
